FAERS Safety Report 5717170-5 (Version None)
Quarter: 2008Q2

REPORT INFORMATION
  Report Type: 
  Country: None (occurrence: None)
  Receive Date: 20080423
  Receipt Date: 20080411
  Transmission Date: 20081010
  Serious: Yes (Death)
  Sender: FDA-Public Use
  Company Number: GXKR2008US03522

PATIENT
  Age: 45 Year
  Sex: Male

DRUGS (15)
  1. AZATHIOPRINE [Suspect]
     Indication: IMMUNOSUPPRESSION
     Dosage: 100 MG/DAY,
  2. METHYLPREDNISOLONE [Suspect]
     Indication: IMMUNOSUPPRESSION
     Dosage: 5 MG, BID,
  3. CYCLOSPORINE [Suspect]
     Dosage: 300 MG, BID
  4. MYCOPHENOLATE MOFETIL [Suspect]
     Dosage: 1 G, BID
  5. PREDNISONE [Suspect]
     Dosage: 10 MG/DAY
  6. TACROLIMUS [Suspect]
     Indication: IMMUNOSUPPRESSION
  7. PROPRANOLOL [Concomitant]
  8. CLOTRIMAZOLE [Concomitant]
  9. OMEPRAZOLE [Concomitant]
  10. MULTIVITAMINS (ASCORBIC ACID, ERGOCALCIFEROL, FOLIC ACID, NICOTINAMIDE [Concomitant]
  11. THIAMINE (THIAMINE) [Concomitant]
  12. FOLATE SODIUM (FOLATE SODIUM) [Concomitant]
  13. ITRACONAZOLE [Concomitant]
  14. VALGANCICLOVIR HCL [Concomitant]
  15. METRONIDAZOLE [Concomitant]

REACTIONS (21)
  - ASCITES [None]
  - BACTERAEMIA [None]
  - BACTERIA STOOL IDENTIFIED [None]
  - CRYPTOCOCCOSIS [None]
  - DIARRHOEA [None]
  - DYSARTHRIA [None]
  - GAIT DISTURBANCE [None]
  - HAEMODIALYSIS [None]
  - HYDROCEPHALUS [None]
  - HYPERREFLEXIA [None]
  - INCONTINENCE [None]
  - MENINGITIS CRYPTOCOCCAL [None]
  - MUSCULOSKELETAL STIFFNESS [None]
  - MYOCLONUS [None]
  - NEUROLOGICAL SYMPTOM [None]
  - OLIGURIA [None]
  - PHOTOPHOBIA [None]
  - REFLEXES ABNORMAL [None]
  - RENAL FAILURE [None]
  - SEPSIS [None]
  - TRISMUS [None]
